FAERS Safety Report 24736215 (Version 1)
Quarter: 2024Q4

REPORT INFORMATION
  Report Type: Spontaneous
  Country: FR (occurrence: FR)
  Receive Date: 20241216
  Receipt Date: 20241216
  Transmission Date: 20250115
  Serious: Yes (Hospitalization, Other)
  Sender: CHEPLAPHARM
  Company Number: None

PATIENT
  Age: 61 Year
  Sex: Female
  Weight: 74.9 kg

DRUGS (17)
  1. OLANZAPINE [Suspect]
     Active Substance: OLANZAPINE
     Indication: Product used for unknown indication
     Route: 048
     Dates: start: 20240826, end: 20240831
  2. FLUCONAZOLE [Suspect]
     Active Substance: FLUCONAZOLE
     Indication: Vulvovaginal mycotic infection
     Route: 048
     Dates: start: 20240830, end: 20240830
  3. MELPHALAN [Suspect]
     Active Substance: MELPHALAN
     Indication: Bone marrow conditioning regimen
     Dosage: INTRAVENOUS DRIP
     Route: 042
     Dates: start: 20240822
  4. VALACYCLOVIR HYDROCHLORIDE [Concomitant]
     Active Substance: VALACYCLOVIR HYDROCHLORIDE
     Indication: Herpes virus infection
     Dosage: MORNING AND EVENING?DAILY DOSE: 2 DOSAGE FORM
  5. BACTRIM [Concomitant]
     Active Substance: SULFAMETHOXAZOLE\TRIMETHOPRIM
     Dosage: 1 TABLET IN THE MORNING ON MONDAYS, WEDNESDAYS AND FRIDAYS, TO BE REPEATED AFTER A VISIT AT D8
  6. LEUCOVORIN CALCIUM [Concomitant]
     Active Substance: LEUCOVORIN CALCIUM
     Dosage: 1 TABLET IN THE MORNING ON TUESDAYS, THURSDAYS AND SATURDAYS, TO BE REPEATED AFTER A VISIT ON D8
  7. PENICILLIN V [Concomitant]
     Active Substance: PENICILLIN V
     Dosage: ONE TABLET MORNING AND EVENING, TO BE REPLACED BY AMOXICILLINE 500 MG MORNING AND EVENING IF NOT ...
  8. POTASSIUM CHLORIDE [Concomitant]
     Active Substance: POTASSIUM CHLORIDE
     Dosage: TWO CAPSULES MORNING AND EVENING FOR 5 DAYS, TO BE REASSESSED ACCORDING TO BLOOD TEST
  9. ECONAZOLE [Concomitant]
     Active Substance: ECONAZOLE
     Dosage: SKIN EMULSION, ONE APPLICATION TO THE VULVA MORNING AND EVENING UNTIL 08/09/24.
     Dates: end: 20240908
  10. SODIUM BICARBONATE [Concomitant]
     Active Substance: SODIUM BICARBONATE
     Dosage: 500 ML: MOUTHWASH 4 TIMES A DAY.
  11. FUNGIZONE [Concomitant]
     Active Substance: AMPHOTERICIN B
     Dosage: REPEAT AS NECESSARY, 3 TIMES A DAY
  12. SMECTA [Concomitant]
     Active Substance: MONTMORILLONITE
     Dosage: 1 SACHET 3 TIMES A DAY IF DIARRHOEA
  13. RACECADOTRIL [Concomitant]
     Active Substance: RACECADOTRIL
     Dosage: ONE TABLET, 3 TIMES A DAY IF DIARRHOEA. ?DAILY DOSE: 3 DOSAGE FORM
  14. ACETAMINOPHEN [Concomitant]
     Active Substance: ACETAMINOPHEN
     Dosage: ONE TABLET IF PAIN AFTER TAKING T?C, 6 HOURS APART, MAXIMUM 4 TIMES A DAY.
  15. ACUPAN [Concomitant]
     Active Substance: NEFOPAM HYDROCHLORIDE
     Dosage: ONE AMPOULE ON SUGAR IF PAIN DESPITE PARACETAMOL, 4 TIMES A DAY, 4 HOURS APART.
  16. ONDANSETRON [Concomitant]
     Active Substance: ONDANSETRON
     Dosage: ONE TABLET IF NAUSEA, 2 TIMES A DAY FOR 1 WEEK.
  17. AMOXICILLIN [Concomitant]
     Active Substance: AMOXICILLIN
     Dosage: MORNING AND EVENING IF NOT AVAILABLE

REACTIONS (2)
  - Acute generalised exanthematous pustulosis [Recovering/Resolving]
  - Cholestasis [Unknown]

NARRATIVE: CASE EVENT DATE: 20240903
